FAERS Safety Report 8088540-8 (Version None)
Quarter: 2012Q1

REPORT INFORMATION
  Report Type: 
  Country: None (occurrence: None)
  Receive Date: 20120128
  Receipt Date: 20110407
  Transmission Date: 20120608
  Serious: No
  Sender: FDA-Public Use
  Company Number: US-ABBOTT-11P-163-0717449-00

PATIENT
  Age: 49 Year
  Sex: Female

DRUGS (8)
  1. TRAMADOL HCL [Concomitant]
     Indication: RHEUMATOID ARTHRITIS
     Dosage: DAILY
  2. ATENOLOL [Concomitant]
     Indication: HYPERTENSION
     Dosage: DAILY
  3. UNKNOW ANTI-INFLAMATORY DRUG [Concomitant]
     Indication: PRODUCT USED FOR UNKNOWN INDICATION
     Dosage: DAILY
  4. UNKNOWN MEDICATION ^NERVE PILL^ [Concomitant]
     Indication: ANXIETY
     Dosage: PRN
  5. HUMIRA [Suspect]
     Indication: RHEUMATOID ARTHRITIS
     Dates: start: 20110201
  6. VITAMIN D [Concomitant]
     Indication: PRODUCT USED FOR UNKNOWN INDICATION
     Dosage: WEEKLY
  7. LEXAPRO [Concomitant]
     Indication: DEPRESSION
     Dosage: 20MG DAILY
  8. FOLIC ACID [Concomitant]
     Indication: PRODUCT USED FOR UNKNOWN INDICATION

REACTIONS (1)
  - INJECTION SITE HAEMORRHAGE [None]
